FAERS Safety Report 13444057 (Version 5)
Quarter: 2017Q4

REPORT INFORMATION
  Report Type: Spontaneous
  Country: US (occurrence: US)
  Receive Date: 20170414
  Receipt Date: 20171030
  Transmission Date: 20180320
  Serious: Yes (Hospitalization)
  Sender: FDA-Public Use
  Company Number: US-PFIZER INC-2017117389

PATIENT
  Age: 69 Year
  Sex: Male
  Weight: 109 kg

DRUGS (5)
  1. ROBITUSSIN PEAK COLD MAXIMUM STRENGTH COUGH PLUS CHEST CONGESTION DM [Suspect]
     Active Substance: DEXTROMETHORPHAN HYDROBROMIDE\GUAIFENESIN
     Indication: COUGH
     Dosage: A LITTLE SIP BUT NEVER TOOK A FULL DOSE UNTIL LAST NIGHT
     Dates: start: 20170311
  2. ROBITUSSIN PEAK COLD MAXIMUM STRENGTH COUGH PLUS CHEST CONGESTION DM [Suspect]
     Active Substance: DEXTROMETHORPHAN HYDROBROMIDE\GUAIFENESIN
     Indication: PARANASAL SINUS HYPERSECRETION
  3. ZESTORETIC [Suspect]
     Active Substance: HYDROCHLOROTHIAZIDE\LISINOPRIL
     Indication: BLOOD PRESSURE ABNORMAL
     Dosage: [HYDROCHLOROTHIAZIDE 12.5MG]/[LISINOPRIL 20MG]
  4. TOPROL XL [Suspect]
     Active Substance: METOPROLOL SUCCINATE
     Indication: BLOOD PRESSURE ABNORMAL
     Dosage: 50 MG, UNK
  5. ROBITUSSIN PEAK COLD MAXIMUM STRENGTH COUGH PLUS CHEST CONGESTION DM [Suspect]
     Active Substance: DEXTROMETHORPHAN HYDROBROMIDE\GUAIFENESIN
     Indication: NASOPHARYNGITIS
     Dosage: 20 ML, SINGLE
     Dates: start: 20170313, end: 20170313

REACTIONS (9)
  - Feeling abnormal [Recovering/Resolving]
  - Overdose [Unknown]
  - Blood pressure increased [Not Recovered/Not Resolved]
  - Cough [Unknown]
  - Malaise [Recovered/Resolved]
  - Insomnia [Recovered/Resolved]
  - Intentional underdose [Recovered/Resolved]
  - Drug dispensing error [Unknown]
  - Pyrexia [Unknown]

NARRATIVE: CASE EVENT DATE: 20170311
